FAERS Safety Report 17596517 (Version 4)
Quarter: 2021Q1

REPORT INFORMATION
  Report Type: Spontaneous
  Country: JP (occurrence: JP)
  Receive Date: 20200330
  Receipt Date: 20210104
  Transmission Date: 20210419
  Serious: Yes (Death, Hospitalization, Other)
  Sender: FDA-Public Use
  Company Number: JP-BRISTOL-MYERS SQUIBB COMPANY-BMS-2020-026376

PATIENT
  Age: 66 Year
  Sex: Male
  Weight: 82 kg

DRUGS (5)
  1. FEBURIC [Concomitant]
     Active Substance: FEBUXOSTAT
     Indication: HYPERURICAEMIA
     Dosage: 10 MILLIGRAM, QD
     Route: 048
     Dates: start: 20150622
  2. ALFACALCIDOL [Concomitant]
     Active Substance: ALFACALCIDOL
     Indication: PROPHYLAXIS
     Dosage: 0.5 MICROGRAM, QD
     Route: 048
     Dates: start: 20170611, end: 20200310
  3. OPDIVO [Suspect]
     Active Substance: NIVOLUMAB
     Indication: METASTATIC RENAL CELL CARCINOMA
     Dosage: 240 MILLIGRAM
     Route: 041
     Dates: start: 20181004, end: 20200303
  4. RANMARK [Concomitant]
     Active Substance: DENOSUMAB
     Indication: METASTASES TO BONE
     Dosage: 120 MILLIGRAM, Q4WK
     Route: 058
     Dates: start: 20170609, end: 20200303
  5. NEXIUM [Concomitant]
     Active Substance: ESOMEPRAZOLE MAGNESIUM
     Indication: GASTROOESOPHAGEAL REFLUX DISEASE
     Dosage: 10 MILLIGRAM, QD
     Route: 048
     Dates: start: 20171124

REACTIONS (3)
  - Adrenal insufficiency [Not Recovered/Not Resolved]
  - Erythema [Not Recovered/Not Resolved]
  - Intracranial tumour haemorrhage [Fatal]

NARRATIVE: CASE EVENT DATE: 20190111
